FAERS Safety Report 5718849-1 (Version None)
Quarter: 2008Q2

REPORT INFORMATION
  Report Type: 
  Country: None (occurrence: None)
  Receive Date: 20080423
  Receipt Date: 20080410
  Transmission Date: 20081010
  Serious: Yes (Other)
  Sender: FDA-Public Use
  Company Number: GXKR2008RU03502

PATIENT
  Age: 49 Year
  Sex: Male

DRUGS (7)
  1. VINCRISTINE [Suspect]
     Indication: MULTIPLE MYELOMA
     Dosage: 2 COURSES,
  2. METHYLPREDNISOLONE [Suspect]
     Indication: MULTIPLE MYELOMA
     Dosage: HIGH DOSE,
     Dates: end: 20000101
  3. PREDNISOLONE [Suspect]
     Indication: MULTIPLE MYELOMA
     Dates: end: 20000101
  4. MELPHALAN(MELPHALAN) UNKNOWN [Suspect]
     Indication: MULTIPLE MYELOMA
     Dosage: 200 MG / M^3,
     Dates: end: 20000101
  5. BISPHOSPHONATES(BISPHOSPHONATES) UNKNOWN [Suspect]
     Indication: MULTIPLE MYELOMA
     Dates: end: 20000101
  6. CYCLOPHOSPHAMIDE [Suspect]
     Indication: MULTIPLE MYELOMA
     Dosage: 3 COURSES,
     Dates: start: 20030301
  7. THALIDOMIDE [Suspect]
     Indication: MULTIPLE MYELOMA
     Dates: start: 20050901, end: 20060301

REACTIONS (8)
  - BONE MARROW FAILURE [None]
  - MUCOSAL HAEMORRHAGE [None]
  - MYELODYSPLASTIC SYNDROME [None]
  - PANCYTOPENIA [None]
  - PARAPROTEINAEMIA [None]
  - PAROXYSMAL NOCTURNAL HAEMOGLOBINURIA [None]
  - RENAL IMPAIRMENT [None]
  - SKIN HAEMORRHAGE [None]
